FAERS Safety Report 20771831 (Version 1)
Quarter: 2022Q2

REPORT INFORMATION
  Report Type: Spontaneous
  Country: US (occurrence: US)
  Receive Date: 20220430
  Receipt Date: 20220430
  Transmission Date: 20220720
  Serious: Yes (Other)
  Sender: FDA-Public Use
  Company Number: US-LUPIN PHARMACEUTICALS INC.-2022-06324

PATIENT
  Age: 6 Day
  Sex: Male

DRUGS (12)
  1. LEVETIRACETAM [Suspect]
     Active Substance: LEVETIRACETAM
     Indication: Generalised tonic-clonic seizure
     Dosage: 60 MILLIGRAM/KILOGRAM
     Route: 065
  2. LEVETIRACETAM [Suspect]
     Active Substance: LEVETIRACETAM
     Dosage: UNK RECEIVED CONTINUES LEVETIRACETAM INFUSION
     Route: 065
  3. LEVETIRACETAM [Suspect]
     Active Substance: LEVETIRACETAM
     Dosage: 10 MILLIGRAM/KILOGRAM, BID
     Route: 065
  4. VANCOMYCIN [Suspect]
     Active Substance: VANCOMYCIN
     Indication: Staphylococcal infection
     Dosage: 10 MILLIGRAM/KILOGRAM, BID
     Route: 065
  5. METRONIDAZOLE [Suspect]
     Active Substance: METRONIDAZOLE
     Indication: Gastrointestinal necrosis
     Dosage: 7.5 MILLIGRAM/KILOGRAM, QID
     Route: 065
  6. METRONIDAZOLE [Suspect]
     Active Substance: METRONIDAZOLE
     Indication: Septic embolus
  7. CEFEPIME [Suspect]
     Active Substance: CEFEPIME HYDROCHLORIDE
     Indication: Gastrointestinal necrosis
     Dosage: 45 MILLIGRAM/KILOGRAM, BID
     Route: 065
  8. CEFEPIME [Suspect]
     Active Substance: CEFEPIME HYDROCHLORIDE
     Indication: Septic embolus
  9. OXACILLIN [Concomitant]
     Active Substance: OXACILLIN SODIUM
     Indication: Staphylococcal bacteraemia
     Dosage: 50 MILLIGRAM/KILOGRAM, TID
     Route: 065
  10. GENTAMICIN [Concomitant]
     Active Substance: GENTAMICIN
     Indication: Staphylococcal bacteraemia
     Dosage: 1.5 MILLIGRAM/KILOGRAM, TID, RECEIVED FOR UP TO DAY OF LIFE (DOL) 14
     Route: 065
  11. DEXTROSE [Concomitant]
     Active Substance: DEXTROSE
     Indication: Hypoglycaemia
     Dosage: DEXTROSE-CONTAINING FLUIDS
     Route: 065
  12. ENOXAPARIN [Concomitant]
     Active Substance: ENOXAPARIN
     Indication: Thrombosis
     Dosage: RECEIVED 2MG/KG/DOSE
     Route: 065

REACTIONS (2)
  - Drug ineffective for unapproved indication [Unknown]
  - Off label use [Unknown]
